FAERS Safety Report 17144776 (Version 1)
Quarter: 2019Q4

REPORT INFORMATION
  Report Type: Spontaneous
  Country: US (occurrence: US)
  Receive Date: 20191212
  Receipt Date: 20191212
  Transmission Date: 20200122
  Serious: No
  Sender: FDA-Public Use
  Company Number: US-NOVEN PHARMACEUTICALS, INC.-US2019000430

PATIENT

DRUGS (1)
  1. ESTRADIOL(GP) [Suspect]
     Active Substance: ESTRADIOL
     Indication: PRODUCT USED FOR UNKNOWN INDICATION
     Dosage: 0.05 MG, UNKNOWN
     Route: 062
     Dates: start: 201907

REACTIONS (4)
  - Libido disorder [Unknown]
  - Vulvovaginal pruritus [Unknown]
  - Hot flush [Unknown]
  - Migraine [Unknown]

NARRATIVE: CASE EVENT DATE: 201907
